FAERS Safety Report 8077418-1 (Version None)
Quarter: 2012Q1

REPORT INFORMATION
  Report Type: 
  Country: None (occurrence: None)
  Receive Date: 20120127
  Receipt Date: 20120119
  Transmission Date: 20120608
  Serious: Yes (Death, Life-Threatening)
  Sender: FDA-Public Use
  Company Number: KR-BAYER-200815966GPV

PATIENT
  Age: 59 Year
  Sex: Female
  Weight: 59 kg

DRUGS (16)
  1. CAPECITABINE [Suspect]
     Indication: GASTRIC CANCER
     Route: 048
     Dates: start: 20080221, end: 20080328
  2. POTASSIUM CHLORIDE [Concomitant]
     Indication: PROPHYLAXIS
     Dosage: DAILY DOSE 10 ML
     Route: 042
     Dates: start: 20080221, end: 20080314
  3. DEXAMETHASONE [Concomitant]
     Indication: ANTIEMETIC SUPPORTIVE CARE
     Dosage: DAILY DOSE 8 MG
     Route: 048
     Dates: start: 20080314, end: 20080324
  4. CISPLATIN [Suspect]
     Indication: GASTRIC CANCER
     Dosage: 130 MG/M2 (DAILY DOSE), QD, INTRAVENOUS
     Route: 042
     Dates: start: 20080221, end: 20080221
  5. CISPLATIN [Suspect]
     Dosage: 130 MG/M2 (DAILY DOSE), QD, INTRAVENOUS
     Route: 042
     Dates: start: 20080314, end: 20080314
  6. FEROBA [Concomitant]
     Indication: ANAEMIA PROPHYLAXIS
     Dosage: DAILY DOSE 256.26 MG
     Route: 048
     Dates: start: 20080221, end: 20080331
  7. PHAZYME [SIMETICONE] [Concomitant]
     Indication: DYSPEPSIA
     Dosage: 3
     Route: 048
     Dates: start: 20080221, end: 20080222
  8. BETAMETHASONE [Concomitant]
     Indication: ANTIEMETIC SUPPORTIVE CARE
     Dosage: DAILY DOSE 10 MG
     Route: 042
     Dates: start: 20080221, end: 20080314
  9. ZANTAC [Concomitant]
     Indication: ANTACID THERAPY
     Dosage: DAILY DOSE 300 MG
     Route: 048
     Dates: start: 20080221, end: 20080324
  10. SORAFENIB (RAF KINASE INHIBITOR) [Suspect]
     Indication: GASTRIC CANCER
     Route: 048
     Dates: start: 20080221, end: 20080331
  11. CAPECITABINE [Suspect]
     Dosage: UNK
  12. ONSERAN [Concomitant]
     Indication: ANTIEMETIC SUPPORTIVE CARE
     Dosage: DAILY DOSE 8 MG
     Route: 042
     Dates: start: 20080221, end: 20080314
  13. LASIX [Concomitant]
     Indication: DIURETIC THERAPY
     Dosage: DAILY DOSE 20 MG
     Route: 042
     Dates: start: 20080314, end: 20080314
  14. ONSERAN [Concomitant]
     Dosage: DAILY DOSE 16 MG
     Route: 042
     Dates: start: 20080322, end: 20080324
  15. ULTRACET [Concomitant]
     Indication: ANALGESIC THERAPY
     Dosage: DAILY DOSE 2115 MG
     Route: 048
     Dates: start: 20080314, end: 20080331
  16. MAGNESIUM SULFATE [Concomitant]
     Indication: PROPHYLAXIS
     Dosage: DAILY DOSE 10 ML
     Route: 042
     Dates: start: 20080221, end: 20080314

REACTIONS (2)
  - NEUTROPENIA [None]
  - GASTRIC PERFORATION [None]
